FAERS Safety Report 4553050-9 (Version None)
Quarter: 2005Q1

REPORT INFORMATION
  Report Type: 
  Country: None (occurrence: None)
  Receive Date: 20050114
  Receipt Date: 20050103
  Transmission Date: 20050727
  Serious: Yes (Hospitalization, Other)
  Sender: FDA-Public Use
  Company Number: PHNU2005DE00444

PATIENT
  Sex: Female

DRUGS (2)
  1. GLEEVEC [Suspect]
     Indication: CHRONIC MYELOID LEUKAEMIA
     Dosage: UNK, UNK
     Route: 048
     Dates: start: 20040101, end: 20041201
  2. GLEEVEC [Suspect]
     Dosage: UNK, UNK
     Route: 048

REACTIONS (3)
  - BLEEDING TIME PROLONGED [None]
  - ECCHYMOSIS [None]
  - HAEMORRHAGE SUBCUTANEOUS [None]
